FAERS Safety Report 5298475-1 (Version None)
Quarter: 2007Q2

REPORT INFORMATION
  Report Type: 
  Country: None (occurrence: None)
  Receive Date: 20070409
  Receipt Date: 20070327
  Transmission Date: 20071010
  Serious: Yes (Other)
  Sender: FDA-Public Use
  Company Number: MEDI-0005525

PATIENT
  Age: 71 Year
  Sex: Female

DRUGS (5)
  1. ETHYOL [Suspect]
     Indication: SMALL CELL LUNG CANCER STAGE UNSPECIFIED
     Dosage: 500 MG, 5 IN 5 D, SUBCUTANEOUS
     Route: 058
     Dates: start: 20070312, end: 20070319
  2. ETHYOL [Suspect]
     Indication: SMALL CELL LUNG CANCER STAGE UNSPECIFIED
     Dosage: 500 MG, 5 IN 5 D, SUBCUTANEOUS
     Route: 058
     Dates: start: 20070320, end: 20070323
  3. CARBOTAXOL (PACLITAXEL, CARBOPLATIN) [Concomitant]
  4. RADIATION THERAPY [Concomitant]
  5. ZOFRAN [Concomitant]

REACTIONS (15)
  - DEHYDRATION [None]
  - DYSPNOEA [None]
  - INJECTION SITE DISCOLOURATION [None]
  - INJECTION SITE ERYTHEMA [None]
  - INJECTION SITE RASH [None]
  - INJECTION SITE REACTION [None]
  - OXYGEN SATURATION DECREASED [None]
  - PHARYNGOLARYNGEAL PAIN [None]
  - RASH GENERALISED [None]
  - RASH MACULO-PAPULAR [None]
  - RASH PRURITIC [None]
  - RECALL PHENOMENON [None]
  - SKIN DISCOLOURATION [None]
  - SKIN LESION [None]
  - WHITE BLOOD CELL COUNT DECREASED [None]
